FAERS Safety Report 24083994 (Version 1)
Quarter: 2024Q3

REPORT INFORMATION
  Report Type: Spontaneous
  Country: CA (occurrence: CA)
  Receive Date: 20240712
  Receipt Date: 20240712
  Transmission Date: 20241016
  Serious: Yes (Death)
  Sender: MYLAN
  Company Number: CA-MYLANLABS-2024M1065191

PATIENT
  Age: 60 Year
  Sex: Female

DRUGS (1)
  1. REVATIO [Suspect]
     Active Substance: SILDENAFIL CITRATE
     Indication: Pulmonary arterial hypertension
     Dosage: 20 MILLIGRAM, TID
     Route: 065
     Dates: start: 20240531

REACTIONS (1)
  - Death [Fatal]

NARRATIVE: CASE EVENT DATE: 20240703
